FAERS Safety Report 8819506 (Version 1)
Quarter: 2012Q4

REPORT INFORMATION
  Report Type: 
  Country: US (occurrence: US)
  Receive Date: 20120930
  Receipt Date: 20120930
  Transmission Date: 20130627
  Serious: No
  Sender: FDA-Public Use
  Company Number: US-ROXANE LABORATORIES, INC.-2012-RO-01861RO

PATIENT
  Sex: Male

DRUGS (1)
  1. LITHIUM CARBONATE [Suspect]

REACTIONS (2)
  - Tremor [Not Recovered/Not Resolved]
  - Balance disorder [Not Recovered/Not Resolved]
